FAERS Safety Report 6048938-6 (Version None)
Quarter: 2009Q1

REPORT INFORMATION
  Report Type: 
  Country: None (occurrence: None)
  Receive Date: 20090123
  Receipt Date: 20081223
  Transmission Date: 20090719
  Serious: Yes (Hospitalization)
  Sender: FDA-Public Use
  Company Number: US-ELI_LILLY_AND_COMPANY-US200901001876

PATIENT
  Sex: Male

DRUGS (13)
  1. BYETTA [Suspect]
     Dosage: 10 MG, 2/D
     Dates: start: 20070130, end: 20081101
  2. TRICOR [Concomitant]
     Dosage: 145 MG, DAILY (1/D)
  3. SIMVASTATIN [Concomitant]
     Indication: HYPERLIPIDAEMIA
     Dosage: 40 MG, EACH EVENING
     Route: 048
  4. DIOVAN /SCH/ [Concomitant]
     Indication: HYPERTENSION
     Dosage: 320 MG, DAILY (1/D)
     Route: 048
  5. HYDROCHLOROTHIAZIDE [Concomitant]
     Dosage: 12.5 MG, DAILY (1/D)
     Dates: end: 20081101
  6. WELLBUTRIN SR [Concomitant]
     Dosage: 150 MG, 2/D
     Route: 048
  7. PROZAC [Concomitant]
     Dosage: 40 MG, DAILY (1/D)
     Route: 048
  8. PROZAC [Concomitant]
     Dosage: 80 MG, DAILY (1/D)
  9. DIABETA [Concomitant]
     Dosage: 5 MG, 2/D
     Route: 048
  10. PIOGLITAZONE HYDROCHLORIDE [Concomitant]
     Dosage: 30 MG, DAILY (1/D)
     Route: 048
  11. GLUCOPHAGE [Concomitant]
     Dosage: 1000 MG, 2/D
     Route: 048
  12. LANTUS [Concomitant]
     Indication: HYPERGLYCAEMIA
     Dosage: 35 U, EACH EVENING
     Route: 058
  13. MOTRIN [Concomitant]
     Indication: PAIN
     Dosage: 600 MG, 3/D
     Route: 048

REACTIONS (6)
  - ATELECTASIS [None]
  - BACK PAIN [None]
  - HEPATIC STEATOSIS [None]
  - PANCREATITIS ACUTE [None]
  - SPLENOMEGALY [None]
  - WEIGHT DECREASED [None]
